FAERS Safety Report 14304776 (Version 1)
Quarter: 2017Q4

REPORT INFORMATION
  Report Type: Spontaneous
  Country: JP (occurrence: JP)
  Receive Date: 20171219
  Receipt Date: 20171219
  Transmission Date: 20180321
  Serious: Yes (Hospitalization, Other)
  Sender: FDA-Public Use
  Company Number: JP-OTSUKA-006315

PATIENT
  Age: 30 Year
  Sex: Male
  Weight: 71 kg

DRUGS (13)
  1. ABILIFY [Suspect]
     Active Substance: ARIPIPRAZOLE
     Indication: BIPOLAR DISORDER
     Dosage: 6 MG, BID
     Route: 048
     Dates: start: 20090223, end: 20090303
  2. TOLEDOMIN [Suspect]
     Active Substance: MILNACIPRAN HYDROCHLORIDE
     Indication: BIPOLAR DISORDER
     Dosage: UNK
     Route: 065
  3. DEPAS [Concomitant]
     Active Substance: ETIZOLAM
     Indication: BIPOLAR DISORDER
     Dosage: 2 MG, BID
     Route: 048
     Dates: start: 20090105, end: 20090405
  4. DEPAS [Concomitant]
     Active Substance: ETIZOLAM
     Dosage: 0.5 MG, BID
     Route: 048
     Dates: start: 20090420
  5. ABILIFY [Suspect]
     Active Substance: ARIPIPRAZOLE
     Dosage: 6 MG, QD
     Route: 048
     Dates: start: 20090330, end: 20090415
  6. ROHYPNOL [Concomitant]
     Active Substance: FLUNITRAZEPAM
     Dosage: 1 MG, QD
     Route: 048
     Dates: start: 20090419
  7. FLUNITRAZEPAM [Concomitant]
     Active Substance: FLUNITRAZEPAM
     Indication: PRODUCT USED FOR UNKNOWN INDICATION
     Dosage: UNK
     Route: 065
     Dates: start: 20090105
  8. ABILIFY [Suspect]
     Active Substance: ARIPIPRAZOLE
     Dosage: 6 MG, BID
     Route: 048
     Dates: start: 20090416
  9. PAXIL [Suspect]
     Active Substance: PAROXETINE HYDROCHLORIDE
     Indication: BIPOLAR DISORDER
     Dosage: 20 MG, BID
     Route: 048
     Dates: start: 20090105
  10. ROHYPNOL [Concomitant]
     Active Substance: FLUNITRAZEPAM
     Indication: BIPOLAR DISORDER
     Dosage: 2 MG, QD
     Route: 048
     Dates: start: 20090105, end: 20090418
  11. AMOXAN [Suspect]
     Active Substance: AMOXAPINE
     Indication: BIPOLAR DISORDER
     Dosage: 25 MG, TID
     Route: 048
     Dates: start: 20090105
  12. DEPAS [Concomitant]
     Active Substance: ETIZOLAM
     Dosage: 1 MG, BID
     Route: 048
     Dates: start: 20090406, end: 20090419
  13. ABILIFY [Suspect]
     Active Substance: ARIPIPRAZOLE
     Dosage: 3 MG, QD
     Route: 048
     Dates: start: 20090309, end: 20090329

REACTIONS (5)
  - Polycythaemia [Unknown]
  - Loss of consciousness [Recovered/Resolved]
  - Hyperlipidaemia [Unknown]
  - Seizure [Recovered/Resolved]
  - Akathisia [Recovered/Resolved]

NARRATIVE: CASE EVENT DATE: 20090303
